FAERS Safety Report 17386591 (Version 1)
Quarter: 2020Q1

REPORT INFORMATION
  Report Type: Spontaneous
  Country: US (occurrence: US)
  Receive Date: 20200206
  Receipt Date: 20200206
  Transmission Date: 20200409
  Serious: No
  Sender: FDA-Public Use
  Company Number: US-LANNETT COMPANY, INC.-US-2019LAN000933

PATIENT
  Sex: Male

DRUGS (2)
  1. DOXEPIN HYDROCHLORIDE. [Suspect]
     Active Substance: DOXEPIN HYDROCHLORIDE
     Indication: PRURITUS
     Dosage: 0.5 ML, (5 MG), AS NEEDED AT HS
     Route: 048
     Dates: start: 20181015, end: 20190412
  2. DOXEPIN HYDROCHLORIDE. [Suspect]
     Active Substance: DOXEPIN HYDROCHLORIDE
     Dosage: 0.5 ML, (5 MG), AS NEEDED
     Route: 048
     Dates: end: 20190412

REACTIONS (3)
  - Product preparation issue [Unknown]
  - Product administered to patient of inappropriate age [Unknown]
  - Product use in unapproved indication [Unknown]
